FAERS Safety Report 7946296-0 (Version None)
Quarter: 2011Q4

REPORT INFORMATION
  Report Type: 
  Country: None (occurrence: None)
  Receive Date: 20111129
  Receipt Date: 20111114
  Transmission Date: 20120403
  Serious: Yes (Hospitalization)
  Sender: FDA-Public Use
  Company Number: US-ROCHE-804091

PATIENT
  Age: 72 Year
  Sex: Female
  Weight: 80.9 kg

DRUGS (3)
  1. IXABEPILONE [Suspect]
     Indication: ENDOMETRIAL CANCER
     Dosage: OVER 1 HR ON DAY 1 X 6 CYCLES,
     Route: 042
  2. AVASTIN [Suspect]
     Indication: ENDOMETRIAL CANCER
     Dosage: OVER 30-90 MINUTES ON DAY 1
     Route: 042
  3. CARBOPLATIN [Suspect]
     Indication: ENDOMETRIAL CANCER
     Dosage: AUC 6 OVER 30 MINUTES ON DAY 1 X 6 CYCLES
     Route: 042

REACTIONS (12)
  - HYPOALBUMINAEMIA [None]
  - ANAEMIA [None]
  - HYPOKALAEMIA [None]
  - HYPONATRAEMIA [None]
  - NEUTROPHIL COUNT DECREASED [None]
  - GASTROINTESTINAL FISTULA [None]
  - HYPOCALCAEMIA [None]
  - SOFT TISSUE NECROSIS [None]
  - HYPOMAGNESAEMIA [None]
  - HYPOPHOSPHATAEMIA [None]
  - INTERNATIONAL NORMALISED RATIO [None]
  - WHITE BLOOD CELL COUNT DECREASED [None]
